FAERS Safety Report 13634785 (Version 1)
Quarter: 2017Q2

REPORT INFORMATION
  Report Type: Spontaneous
  Country: US (occurrence: US)
  Receive Date: 20170531
  Receipt Date: 20170531
  Transmission Date: 20170830
  Serious: No
  Sender: FDA-Public Use
  Company Number: US-ASTELLAS-1656905

PATIENT
  Sex: Female

DRUGS (16)
  1. TARCEVA [Suspect]
     Active Substance: ERLOTINIB HYDROCHLORIDE
     Route: 048
     Dates: start: 20151009
  2. FLAXSEED [Concomitant]
     Active Substance: FLAX SEED
  3. FLONASE (UNITED STATES) [Concomitant]
  4. COREG [Concomitant]
     Active Substance: CARVEDILOL
  5. ALDACTONE [Concomitant]
     Active Substance: SPIRONOLACTONE
  6. MECLIZINE [Concomitant]
     Active Substance: MECLIZINE HYDROCHLORIDE
  7. VENTOLIN [Concomitant]
     Active Substance: ALBUTEROL SULFATE
  8. TIOTROPIUM [Concomitant]
     Active Substance: TIOTROPIUM
  9. TARCEVA [Suspect]
     Active Substance: ERLOTINIB HYDROCHLORIDE
     Indication: LUNG NEOPLASM MALIGNANT
     Route: 048
     Dates: start: 20151013
  10. HYDRALAZINE [Concomitant]
     Active Substance: HYDRALAZINE HYDROCHLORIDE
  11. VITAMIN B6 [Concomitant]
     Active Substance: PYRIDOXINE HYDROCHLORIDE
  12. PROCHLORPERAZINE. [Concomitant]
     Active Substance: PROCHLORPERAZINE
  13. ALPRAZOLAM. [Concomitant]
     Active Substance: ALPRAZOLAM
  14. CRANBERRY. [Concomitant]
     Active Substance: CRANBERRY
  15. IMODIUM [Concomitant]
     Active Substance: LOPERAMIDE HYDROCHLORIDE
  16. SODIUM BICARBONATE. [Concomitant]
     Active Substance: SODIUM BICARBONATE

REACTIONS (17)
  - Arthritis [Unknown]
  - Blood pressure decreased [Unknown]
  - Paraesthesia [Unknown]
  - Decreased appetite [Unknown]
  - Muscle spasms [Unknown]
  - Disturbance in attention [Unknown]
  - Fatigue [Unknown]
  - Gastrointestinal disorder [Unknown]
  - Malaise [Unknown]
  - Blood pressure increased [Unknown]
  - Insomnia [Unknown]
  - Diarrhoea [Unknown]
  - Hypoaesthesia [Unknown]
  - Body temperature decreased [Unknown]
  - Muscle twitching [Unknown]
  - Joint stiffness [Unknown]
  - Hypersomnia [Unknown]
